FAERS Safety Report 9410373 (Version 1)
Quarter: 2013Q3

REPORT INFORMATION
  Report Type: Report from Study
  Country: FR (occurrence: FR)
  Receive Date: 20130719
  Receipt Date: 20130719
  Transmission Date: 20140515
  Serious: Yes (Hospitalization)
  Sender: FDA-Public Use
  Company Number: FR-ROCHE-1246162

PATIENT
  Age: 75 Year
  Sex: Female
  Weight: 47 kg

DRUGS (46)
  1. TOCILIZUMAB [Suspect]
     Indication: RHEUMATOID ARTHRITIS
     Dosage: DOSE ADMINISTERED: 360 MG
     Route: 041
     Dates: start: 20100930
  2. TOCILIZUMAB [Suspect]
     Route: 041
     Dates: start: 20101028
  3. TOCILIZUMAB [Suspect]
     Dosage: DOSE ADMINISTERED: 360 MG.
     Route: 041
     Dates: start: 20101125
  4. TOCILIZUMAB [Suspect]
     Dosage: DOSE ADMINISTERED: 360 MG.
     Route: 041
     Dates: start: 20101222
  5. TOCILIZUMAB [Suspect]
     Dosage: DOSE ADMINISTERED: 360 MG.
     Route: 041
     Dates: start: 20110120
  6. TOCILIZUMAB [Suspect]
     Dosage: DOSE ADMINISTERED: 400 MG.
     Route: 041
     Dates: start: 20110217
  7. TOCILIZUMAB [Suspect]
     Dosage: DOSE ADMINISTERED: 400 MG.
     Route: 041
     Dates: start: 20110317
  8. TOCILIZUMAB [Suspect]
     Dosage: DOSE ADMINISTERED: 400 MG.
     Route: 041
     Dates: start: 20110414
  9. TOCILIZUMAB [Suspect]
     Dosage: DOSE ADMINISTERED: 400 MG.
     Route: 041
     Dates: start: 20110512
  10. TOCILIZUMAB [Suspect]
     Dosage: DOSE ADMINISTERED: 360 MG.
     Route: 041
     Dates: start: 20110609
  11. TOCILIZUMAB [Suspect]
     Dosage: DOSE ADMINISTERED: UNSPECIFIED.
     Route: 041
     Dates: start: 20110707
  12. TOCILIZUMAB [Suspect]
     Dosage: DOSE ADMINISTERED: UNSPECIFIED DOSE
     Route: 041
     Dates: start: 20110804
  13. TOCILIZUMAB [Suspect]
     Dosage: DOSE ADMINISTERED: 360MG.
     Route: 041
     Dates: start: 20110926
  14. TOCILIZUMAB [Suspect]
     Dosage: DOSE ADMINISTERED: UNSPECIFIED.
     Route: 041
     Dates: start: 20111027
  15. TOCILIZUMAB [Suspect]
     Dosage: LAST DOSE PRIOR TO SAE: 27/OCT/2011; DOSE ADMINISTERED: UNSPECIFIED.
     Route: 041
     Dates: end: 20120209
  16. CORTANCYL [Concomitant]
     Indication: RHEUMATOID ARTHRITIS
     Route: 065
     Dates: start: 20100930
  17. CORTANCYL [Concomitant]
     Route: 065
     Dates: start: 20101222
  18. CORTANCYL [Concomitant]
     Route: 065
     Dates: start: 20110120
  19. CORTANCYL [Concomitant]
     Route: 065
     Dates: start: 20110217
  20. CORTANCYL [Concomitant]
     Route: 065
     Dates: start: 20110317
  21. CORTANCYL [Concomitant]
     Route: 065
     Dates: start: 20110512
  22. CORTANCYL [Concomitant]
     Route: 065
     Dates: start: 20110609
  23. CORTANCYL [Concomitant]
     Route: 065
     Dates: start: 20110707
  24. CORTANCYL [Concomitant]
     Route: 065
     Dates: start: 20110804
  25. CORTANCYL [Concomitant]
     Route: 065
     Dates: start: 20110926
  26. CORTANCYL [Concomitant]
     Route: 065
     Dates: start: 20111027
  27. CORTANCYL [Concomitant]
     Route: 065
     Dates: start: 20120807
  28. CORTANCYL [Concomitant]
     Route: 065
     Dates: start: 20130207
  29. METHOTREXATE [Concomitant]
     Route: 065
     Dates: start: 20110317
  30. METHOTREXATE [Concomitant]
     Route: 065
     Dates: start: 20110414
  31. METHOTREXATE [Concomitant]
     Route: 065
     Dates: start: 20110512
  32. METHOTREXATE [Concomitant]
     Route: 065
     Dates: start: 20110609
  33. METHOTREXATE [Concomitant]
     Route: 065
     Dates: start: 20110707
  34. METHOTREXATE [Concomitant]
     Route: 065
     Dates: start: 20110804
  35. METHOTREXATE [Concomitant]
     Route: 065
     Dates: start: 20110926
  36. METHOTREXATE [Concomitant]
     Route: 065
     Dates: start: 20111027
  37. METHOTREXATE [Concomitant]
     Route: 065
     Dates: start: 20120807
  38. SALAZOPYRINE [Concomitant]
     Route: 065
  39. IXPRIM [Concomitant]
     Route: 065
  40. MABTHERA [Concomitant]
     Route: 065
     Dates: start: 20110804
  41. MABTHERA [Concomitant]
     Route: 065
     Dates: start: 20120807
  42. SPECIAFOLDINE [Concomitant]
     Route: 065
  43. SPECIAFOLDINE [Concomitant]
     Route: 065
  44. FLECTOR (FRANCE) [Concomitant]
  45. ZALDIAR [Concomitant]
  46. VIREAD [Concomitant]
     Route: 065

REACTIONS (9)
  - Tendonitis [Recovered/Resolved]
  - Arthralgia [Recovered/Resolved]
  - Carpal tunnel syndrome [Recovered/Resolved]
  - Pelvic fracture [Recovered/Resolved]
  - Bronchitis [Recovered/Resolved]
  - Toothache [Recovered/Resolved]
  - Hepatitis B [Not Recovered/Not Resolved]
  - Urinary tract infection [Recovered/Resolved]
  - Skin ulcer [Not Recovered/Not Resolved]
